FAERS Safety Report 20920232 (Version 6)
Quarter: 2022Q3

REPORT INFORMATION
  Report Type: Spontaneous
  Country: US (occurrence: US)
  Receive Date: 20220606
  Receipt Date: 20220906
  Transmission Date: 20221027
  Serious: Yes (Other)
  Sender: FDA-Public Use
  Company Number: US-PFIZER INC-202200793370

PATIENT
  Age: 47 Year
  Sex: Female
  Weight: 86.18 kg

DRUGS (4)
  1. PAXLOVID [Suspect]
     Active Substance: NIRMATRELVIR\RITONAVIR
     Indication: COVID-19 treatment
     Dosage: PF-07321332 300 MG]/[RITONAVIR 100 MG]; 2X/DAY
     Route: 048
     Dates: start: 20220527, end: 20220601
  2. PROPRANOLOL [Concomitant]
     Active Substance: PROPRANOLOL HYDROCHLORIDE
     Indication: Hypertension
     Dosage: 120 MG, DAILY
  3. PROPRANOLOL [Concomitant]
     Active Substance: PROPRANOLOL HYDROCHLORIDE
     Indication: Palpitations
  4. ENALAPRIL MALEATE [Concomitant]
     Active Substance: ENALAPRIL MALEATE
     Indication: Hypertension
     Dosage: 2.5 MG, 1X/DAY

REACTIONS (5)
  - Blood pressure increased [Unknown]
  - Condition aggravated [Unknown]
  - Dysgeusia [Recovered/Resolved]
  - Insomnia [Unknown]
  - Tachycardia [Unknown]

NARRATIVE: CASE EVENT DATE: 20220527
